FAERS Safety Report 15596144 (Version 2)
Quarter: 2018Q4

REPORT INFORMATION
  Report Type: Report from Study
  Country: TW (occurrence: TW)
  Receive Date: 20181107
  Receipt Date: 20181112
  Transmission Date: 20190205
  Serious: Yes (Other)
  Sender: FDA-Public Use
  Company Number: TW-B.I. PHARMACEUTICALS,INC./RIDGEFIELD-2018-BI-053876

PATIENT
  Age: 63 Year
  Sex: Female

DRUGS (3)
  1. GILOTRIF [Suspect]
     Active Substance: AFATINIB
     Indication: METASTASES TO BONE
  2. GILOTRIF [Suspect]
     Active Substance: AFATINIB
     Indication: METASTASES TO ADRENALS
  3. GILOTRIF [Suspect]
     Active Substance: AFATINIB
     Indication: LUNG ADENOCARCINOMA STAGE III
     Route: 065

REACTIONS (2)
  - Malignant neoplasm progression [Unknown]
  - Small cell lung cancer [Unknown]
